FAERS Safety Report 8458644-6 (Version None)
Quarter: 2012Q2

REPORT INFORMATION
  Report Type: 
  Country: None (occurrence: None)
  Receive Date: 20120622
  Receipt Date: 20120618
  Transmission Date: 20120825
  Serious: Yes (Other)
  Sender: FDA-Public Use
  Company Number: US-PFIZER INC-2012146922

PATIENT
  Sex: Female
  Weight: 63.492 kg

DRUGS (1)
  1. CADUET [Suspect]
     Indication: HYPERTENSION
     Dosage: [AMLODIPINE BESILATE 10 MG]/ [ATORVASTATIN CALCIUM 20 MG], ONCE A DAY
     Route: 048
     Dates: end: 20120601

REACTIONS (4)
  - HEADACHE [None]
  - FEELING ABNORMAL [None]
  - MALAISE [None]
  - DIABETES MELLITUS [None]
